FAERS Safety Report 8605700-5 (Version None)
Quarter: 2012Q3

REPORT INFORMATION
  Report Type: 
  Country: None (occurrence: None)
  Receive Date: 20120820
  Receipt Date: 20120806
  Transmission Date: 20120928
  Serious: Yes (Hospitalization)
  Sender: FDA-Public Use
  Company Number: US-ROCHE-1072369

PATIENT
  Sex: Female

DRUGS (7)
  1. RIBAVIRIN [Suspect]
     Indication: HEPATITIS C
     Dosage: DIVIDED DOSES
     Route: 048
     Dates: start: 20120802
  2. AZOR (UNITED STATES) [Concomitant]
  3. INCIVEK [Suspect]
     Indication: HEPATITIS C
     Dates: start: 20120802
  4. ALBUTEROL [Concomitant]
  5. NEBULIZER (UNKNOWN DRUG) [Concomitant]
  6. PEGASYS [Suspect]
     Indication: HEPATITIS C
     Route: 058
     Dates: start: 20120802
  7. FLUTICASONE PROPIONATE [Concomitant]

REACTIONS (9)
  - ACNE [None]
  - ASTHMA [None]
  - FEELING OF BODY TEMPERATURE CHANGE [None]
  - RASH [None]
  - DIZZINESS [None]
  - DRUG DOSE OMISSION [None]
  - SYNCOPE [None]
  - BLOOD PRESSURE DECREASED [None]
  - ASTHENIA [None]
